FAERS Safety Report 11884541 (Version 1)
Quarter: 2015Q4

REPORT INFORMATION
  Report Type: Spontaneous
  Country: US (occurrence: None)
  Receive Date: 20151231
  Receipt Date: 20151231
  Transmission Date: 20160305
  Serious: Yes (Hospitalization)
  Sender: FDA-Public Use
  Company Number: None

PATIENT
  Age: 66 Year
  Sex: Male
  Weight: 100 kg

DRUGS (26)
  1. LENALIDOMIDE 5 MG [Suspect]
     Active Substance: LENALIDOMIDE
     Indication: PLASMA CELL MYELOMA
     Route: 048
     Dates: start: 20140904, end: 20151229
  2. ACYCLOVIR. [Concomitant]
     Active Substance: ACYCLOVIR
  3. ATORVASTATIN [Concomitant]
     Active Substance: ATORVASTATIN
  4. ONDANSETRON [Concomitant]
     Active Substance: ONDANSETRON
  5. INSULIN DETEMIR [Concomitant]
     Active Substance: INSULIN DETEMIR
  6. LORAZEPAM. [Concomitant]
     Active Substance: LORAZEPAM
  7. PROCHLORPERAZINE. [Concomitant]
     Active Substance: PROCHLORPERAZINE
  8. TRIMETHOPRIM-SULFAMETHOXAZOLE [Concomitant]
     Active Substance: SULFAMETHOXAZOLE\TRIMETHOPRIM
  9. BORTEZOMIB 3 MG [Suspect]
     Active Substance: BORTEZOMIB
     Indication: MULTIPLE SCLEROSIS
     Dosage: 1.3 MG/M2, DAYS 1,4,8,11
     Route: 042
     Dates: start: 20150904, end: 20151228
  10. VITAMIN B COMPLEX [Concomitant]
     Active Substance: CYANOCOBALAMIN\DEXPANTHENOL\NIACINAMIDE\PYRIDOXINE HYDROCHLORIDE\RIBOFLAVIN 5^-PHOSPHATE SODIUM\THIAMINE HYDROCHLORIDE\VITAMIN B COMPLEX
  11. ENOXAPARIN [Concomitant]
     Active Substance: ENOXAPARIN
  12. MAGNESIUM OXIDE. [Concomitant]
     Active Substance: MAGNESIUM OXIDE
  13. ZOLPIDEM [Concomitant]
     Active Substance: ZOLPIDEM\ZOLPIDEM TARTRATE
  14. OMEPRAZOLE. [Concomitant]
     Active Substance: OMEPRAZOLE
  15. CILOSTAZOL. [Concomitant]
     Active Substance: CILOSTAZOL
  16. DEXAMETHASONE. [Concomitant]
     Active Substance: DEXAMETHASONE
  17. OXYCODONE [Concomitant]
     Active Substance: OXYCODONE
  18. FENOFIBRIC ACID. [Concomitant]
     Active Substance: FENOFIBRIC ACID
  19. FOLIC ACID. [Concomitant]
     Active Substance: FOLIC ACID
  20. LEVOFLOXACIN. [Concomitant]
     Active Substance: LEVOFLOXACIN
  21. LISINOPRIL. [Concomitant]
     Active Substance: LISINOPRIL
  22. VITAMIN E [Concomitant]
     Active Substance: .ALPHA.-TOCOPHEROL
  23. FUROSEMIDE. [Concomitant]
     Active Substance: FUROSEMIDE
  24. CALCIUM-CHOLECALCIFEROL [Concomitant]
     Active Substance: CALCIUM\CHOLECALCIFEROL
  25. DILTIAZEM [Concomitant]
     Active Substance: DILTIAZEM
  26. NEBIVOLOL. [Concomitant]
     Active Substance: NEBIVOLOL

REACTIONS (2)
  - Tachycardia [None]
  - Chest discomfort [None]

NARRATIVE: CASE EVENT DATE: 20151229
